FAERS Safety Report 8975630 (Version 1)
Quarter: 2012Q4

REPORT INFORMATION
  Report Type: 
  Country: PR (occurrence: PR)
  Receive Date: 20121219
  Receipt Date: 20121219
  Transmission Date: 20130627
  Serious: No
  Sender: FDA-Public Use
  Company Number: PR-BAYER-2012-132278

PATIENT
  Age: 69 Year
  Sex: Male

DRUGS (1)
  1. NEXAVAR [Suspect]
     Indication: HEPATIC NEOPLASM MALIGNANT
     Dosage: 400 mg, UNK
     Route: 048
     Dates: start: 20121105

REACTIONS (4)
  - Dry skin [None]
  - Rash macular [None]
  - Oral pain [None]
  - Insomnia [None]
